FAERS Safety Report 21981455 (Version 1)
Quarter: 2023Q1

REPORT INFORMATION
  Report Type: Spontaneous
  Country: US (occurrence: US)
  Receive Date: 20230211
  Receipt Date: 20230211
  Transmission Date: 20230418
  Serious: Yes (Other)
  Sender: FDA-Public Use
  Company Number: US-AMGEN-USASP2023022365

PATIENT

DRUGS (4)
  1. MVASI [Suspect]
     Active Substance: BEVACIZUMAB-AWWB
     Indication: Product used for unknown indication
     Dosage: UNK
     Route: 065
  2. MVASI [Suspect]
     Active Substance: BEVACIZUMAB-AWWB
     Dosage: 800 MILLIGRAM
     Route: 065
     Dates: start: 20230118
  3. MVASI [Suspect]
     Active Substance: BEVACIZUMAB-AWWB
     Dosage: 700 MILLIGRAM
     Route: 065
     Dates: start: 20230123
  4. MVASI [Suspect]
     Active Substance: BEVACIZUMAB-AWWB
     Dosage: 1200 MILLIGRAM
     Route: 065
     Dates: start: 20230126

REACTIONS (2)
  - Disease progression [Unknown]
  - Fall [Unknown]
